FAERS Safety Report 9698941 (Version 2)
Quarter: 2013Q4

REPORT INFORMATION
  Report Type: Spontaneous
  Country: JP (occurrence: JP)
  Receive Date: 20131120
  Receipt Date: 20131202
  Transmission Date: 20140711
  Serious: Yes (Other)
  Sender: FDA-Public Use
  Company Number: JP-PFIZER INC-2013331677

PATIENT
  Age: 80 Year
  Sex: Male

DRUGS (3)
  1. LYRICA [Suspect]
     Route: 048
  2. TRAMCET [Concomitant]
  3. PRIMPERAN [Concomitant]

REACTIONS (5)
  - Overdose [Unknown]
  - Movement disorder [Unknown]
  - Restlessness [Unknown]
  - Dysarthria [Unknown]
  - Malaise [Unknown]
